FAERS Safety Report 18834395 (Version 1)
Quarter: 2021Q1

REPORT INFORMATION
  Report Type: Spontaneous
  Country: US (occurrence: US)
  Receive Date: 20210203
  Receipt Date: 20210203
  Transmission Date: 20210419
  Serious: Yes (Life-Threatening, Hospitalization, Other)
  Sender: FDA-Public Use
  Company Number: US-NEXUS PHARMA-000029

PATIENT
  Age: 67 Year
  Sex: Male

DRUGS (3)
  1. DEXAMETHASONE. [Suspect]
     Active Substance: DEXAMETHASONE
     Indication: ACUTE PROMYELOCYTIC LEUKAEMIA
     Dates: start: 20200804
  2. ARSENIC [Suspect]
     Active Substance: ARSENIC
     Indication: ACUTE PROMYELOCYTIC LEUKAEMIA
     Dates: start: 20200804
  3. TRETINOIN. [Suspect]
     Active Substance: TRETINOIN
     Indication: ACUTE PROMYELOCYTIC LEUKAEMIA
     Dates: start: 20200804

REACTIONS (3)
  - Acute kidney injury [Recovering/Resolving]
  - Respiratory failure [Recovering/Resolving]
  - Differentiation syndrome [Recovering/Resolving]
